FAERS Safety Report 16683608 (Version 1)
Quarter: 2019Q3

REPORT INFORMATION
  Report Type: Spontaneous
  Country: US (occurrence: US)
  Receive Date: 20190624
  Receipt Date: 20190624
  Transmission Date: 20191004
  Serious: No
  Sender: FDA-Public Use
  Company Number: None

PATIENT
  Age: 51 Year
  Sex: Female

DRUGS (1)
  1. CAPECITABINE TAB 150MG [Suspect]
     Active Substance: CAPECITABINE
     Dates: start: 20190222

REACTIONS (6)
  - Toothache [None]
  - Paraesthesia [None]
  - Arthralgia [None]
  - Rash [None]
  - Musculoskeletal pain [None]
  - Asthenia [None]

NARRATIVE: CASE EVENT DATE: 20190604
